FAERS Safety Report 7506024-X (Version None)
Quarter: 2011Q2

REPORT INFORMATION
  Report Type: 
  Country: None (occurrence: None)
  Receive Date: 20110526
  Receipt Date: 20110517
  Transmission Date: 20111010
  Serious: Yes (Other)
  Sender: FDA-Public Use
  Company Number: US-ROCHE-778352

PATIENT
  Age: 49 Year
  Sex: Female

DRUGS (5)
  1. TAXOL [Suspect]
     Route: 065
     Dates: start: 20070701
  2. HERCEPTIN [Suspect]
     Route: 065
     Dates: start: 20070701
  3. CARBOPLATIN [Suspect]
     Route: 065
     Dates: start: 20070701
  4. LAPATINIB [Suspect]
     Route: 065
     Dates: start: 20100501
  5. XELODA [Suspect]
     Route: 065
     Dates: start: 20100501

REACTIONS (4)
  - BLISTER [None]
  - ALOPECIA [None]
  - MALIGNANT MELANOMA [None]
  - DRUG INEFFECTIVE [None]
